FAERS Safety Report 11193556 (Version 1)
Quarter: 2015Q2

REPORT INFORMATION
  Report Type: Spontaneous
  Country: US (occurrence: US)
  Receive Date: 20150616
  Receipt Date: 20150616
  Transmission Date: 20150821
  Serious: No
  Sender: FDA-Public Use
  Company Number: US-TAKEDA-2015MPI001018

PATIENT
  Age: 66 Year
  Sex: Male

DRUGS (4)
  1. VELCADE [Suspect]
     Active Substance: BORTEZOMIB
     Indication: PLASMA CELL MYELOMA
     Dosage: 1.6 MG/M2, 1/WEEK
     Route: 058
     Dates: start: 201212, end: 201305
  2. LENALIDOMIDE [Suspect]
     Active Substance: LENALIDOMIDE
     Indication: PLASMA CELL MYELOMA
     Dosage: 10 MG, QD
     Route: 048
     Dates: start: 201312
  3. LENALIDOMIDE [Suspect]
     Active Substance: LENALIDOMIDE
     Dosage: 25 MG, QD
     Route: 048
     Dates: start: 201402
  4. LENALIDOMIDE [Suspect]
     Active Substance: LENALIDOMIDE
     Dosage: 10 MG, UNK
     Route: 048
     Dates: start: 201409

REACTIONS (1)
  - Neuropathy peripheral [Not Recovered/Not Resolved]

NARRATIVE: CASE EVENT DATE: 201305
